FAERS Safety Report 8519370-8 (Version None)
Quarter: 2012Q3

REPORT INFORMATION
  Report Type: 
  Country: None (occurrence: None)
  Receive Date: 20120718
  Receipt Date: 20120705
  Transmission Date: 20120928
  Serious: Yes (Other)
  Sender: FDA-Public Use
  Company Number: US-MYLANLABS-2012S1013976

PATIENT
  Age: 47 Year
  Sex: Female

DRUGS (2)
  1. ARIPIPRAZOLE [Interacting]
     Indication: SCHIZOPHRENIA, PARANOID TYPE
     Dosage: INCREASED TO 15MG DAILY FOR 9 DAYS
     Route: 065
  2. CLOZAPINE [Suspect]
     Indication: SCHIZOPHRENIA, PARANOID TYPE
     Dosage: 700MG DAILY (USUAL DOSE)
     Route: 065

REACTIONS (3)
  - HALLUCINATION, AUDITORY [None]
  - DRUG INTERACTION [None]
  - DELUSION [None]
